FAERS Safety Report 9868026 (Version 1)
Quarter: 2014Q1

REPORT INFORMATION
  Report Type: Spontaneous
  Country: US (occurrence: None)
  Receive Date: 20140203
  Receipt Date: 20140203
  Transmission Date: 20141002
  Serious: Yes (Other)
  Sender: FDA-Public Use
  Company Number: None

PATIENT
  Age: 53 Year
  Sex: Female
  Weight: 81.8 kg

DRUGS (2)
  1. AMITRIPTYLINE [Suspect]
     Route: 048
     Dates: start: 20131213, end: 20140103
  2. TOPIRAMATE [Suspect]
     Indication: MIGRAINE
     Dosage: ^FOR YEARS^
     Route: 048

REACTIONS (4)
  - Dysphemia [None]
  - Dysarthria [None]
  - Dysarthria [None]
  - Dysarthria [None]
